FAERS Safety Report 6183763-7 (Version None)
Quarter: 2009Q2

REPORT INFORMATION
  Report Type: 
  Country: None (occurrence: None)
  Receive Date: 20090508
  Receipt Date: 20090206
  Transmission Date: 20091009
  Serious: No
  Sender: FDA-Public Use
  Company Number: A0764536A

PATIENT
  Age: 51 Year
  Sex: Male
  Weight: 136.4 kg

DRUGS (2)
  1. ALTABAX [Suspect]
     Route: 061
     Dates: start: 20081101
  2. NO CONCURRENT MEDICATION [Concomitant]

REACTIONS (4)
  - DERMATITIS CONTACT [None]
  - HYPERSENSITIVITY [None]
  - SKIN DISORDER [None]
  - SKIN IRRITATION [None]
